FAERS Safety Report 5851758-6 (Version None)
Quarter: 2008Q3

REPORT INFORMATION
  Report Type: 
  Country: None (occurrence: None)
  Receive Date: 20080808
  Receipt Date: 20070619
  Transmission Date: 20090109
  Serious: Yes (Other)
  Sender: FDA-Public Use
  Company Number: US-JNJFOC-20070401745

PATIENT
  Age: 6 Year
  Sex: Male
  Weight: 38.5557 kg

DRUGS (2)
  1. CHILDREN'S MOTRIN [Suspect]
     Indication: PYREXIA
     Dosage: 400 MG, 1 IN 1 TOTAL
     Dates: start: 20070325, end: 20070325
  2. CHILDREN'S MOTRIN [Suspect]
     Indication: PYREXIA
     Dosage: 400 MG, 1 IN 1 TOTAL
     Dates: start: 20070325

REACTIONS (2)
  - HYPERSENSITIVITY [None]
  - INCORRECT DOSE ADMINISTERED [None]
